FAERS Safety Report 25127255 (Version 2)
Quarter: 2025Q2

REPORT INFORMATION
  Report Type: Spontaneous
  Country: US (occurrence: US)
  Receive Date: 20250327
  Receipt Date: 20250618
  Transmission Date: 20250716
  Serious: No
  Sender: UCB
  Company Number: US-UCBSA-2025009106

PATIENT
  Sex: Female
  Weight: 140.61 kg

DRUGS (1)
  1. BIMZELX [Suspect]
     Active Substance: BIMEKIZUMAB-BKZX
     Indication: Psoriasis
     Dosage: 320 MILLIGRAM, EV 8 WEEKS
     Route: 058
     Dates: start: 202410

REACTIONS (4)
  - Abdominal distension [Unknown]
  - Arthralgia [Unknown]
  - Swelling face [Unknown]
  - Peripheral swelling [Unknown]
